FAERS Safety Report 22038768 (Version 2)
Quarter: 2023Q4

REPORT INFORMATION
  Report Type: Spontaneous
  Country: NL (occurrence: NL)
  Receive Date: 20230227
  Receipt Date: 20231017
  Transmission Date: 20240110
  Serious: Yes (Other)
  Sender: FDA-Public Use
  Company Number: NL-SA-2017SA146265

PATIENT

DRUGS (12)
  1. PREGABALIN [Suspect]
     Active Substance: PREGABALIN
     Indication: Neuralgia
     Dosage: 75 MG,QD
     Route: 065
  2. PREGABALIN [Suspect]
     Active Substance: PREGABALIN
     Indication: Pain
     Dosage: 50 MG, TID
     Route: 065
  3. PREGABALIN [Suspect]
     Active Substance: PREGABALIN
     Indication: Nervousness
  4. PREGABALIN [Suspect]
     Active Substance: PREGABALIN
     Indication: Fibromyalgia
  5. PREGABALIN [Suspect]
     Active Substance: PREGABALIN
     Indication: Diabetic neuropathy
  6. ACETAMINOPHEN\TRAMADOL HYDROCHLORIDE [Suspect]
     Active Substance: ACETAMINOPHEN\TRAMADOL HYDROCHLORIDE
     Indication: Neuralgia
     Dosage: 75 MG, QD
     Route: 065
  7. ACETAMINOPHEN [Suspect]
     Active Substance: ACETAMINOPHEN
     Indication: Product used for unknown indication
     Dosage: UNK UNK, UNK
     Route: 065
  8. METHYLPREDNISOLONE [Suspect]
     Active Substance: METHYLPREDNISOLONE
     Indication: Neuralgia
     Dosage: 75 MG, QD
     Route: 065
  9. FOLIC ACID [Concomitant]
     Active Substance: FOLIC ACID
     Indication: Product used for unknown indication
     Route: 065
  10. ALPRAZOLAM [Concomitant]
     Active Substance: ALPRAZOLAM
     Indication: Product used for unknown indication
     Route: 065
  11. HYDROCODONE BITARTRATE AND ACETAMINOPHEN [Concomitant]
     Active Substance: ACETAMINOPHEN\HYDROCODONE BITARTRATE
     Indication: Product used for unknown indication
     Route: 065
  12. MODAFINIL [Concomitant]
     Active Substance: MODAFINIL
     Indication: Product used for unknown indication
     Route: 065

REACTIONS (16)
  - Skin burning sensation [Recovered/Resolved]
  - Chromatopsia [Recovered/Resolved]
  - Photophobia [Recovered/Resolved]
  - Colour blindness [Recovered/Resolved]
  - Tunnel vision [Recovered/Resolved]
  - Colour blindness acquired [Recovered/Resolved]
  - Eye swelling [Recovered/Resolved]
  - Photopsia [Recovered/Resolved]
  - Visual impairment [Recovered/Resolved]
  - Eye pain [Unknown]
  - Intraocular pressure increased [Unknown]
  - Visual field defect [Unknown]
  - Pruritus [Recovered/Resolved]
  - Nausea [Recovered/Resolved]
  - Rash [Recovered/Resolved]
  - Vision blurred [Recovered/Resolved]
